FAERS Safety Report 6754939-2 (Version None)
Quarter: 2010Q2

REPORT INFORMATION
  Report Type: 
  Country: None (occurrence: None)
  Receive Date: 20100528
  Receipt Date: 20100515
  Transmission Date: 20101027
  Serious: Yes (Hospitalization)
  Sender: FDA-Public Use
  Company Number: 2010AP001032

PATIENT
  Age: 21 Year
  Sex: Female

DRUGS (7)
  1. ESCITALOPRAM OXALATE [Suspect]
     Dosage: 560 MG
  2. TRAMADOL HCL [Suspect]
     Dosage: 3 GM
  3. MIRTAZAPINE [Suspect]
     Dosage: 315 MG
  4. FLUOXETINE HCL [Suspect]
     Dosage: 1.1 GM
  5. RISPERIDONE [Suspect]
     Dosage: 120 MG
  6. QUETIAPINE [Suspect]
     Dosage: 15 GM
  7. LITHIUM CARBONATE [Suspect]
     Dosage: 13 GM

REACTIONS (5)
  - DRUG INEFFECTIVE [None]
  - ELECTROCARDIOGRAM QT PROLONGED [None]
  - ELECTROCARDIOGRAM T WAVE INVERSION [None]
  - MULTIPLE DRUG OVERDOSE INTENTIONAL [None]
  - SEROTONIN SYNDROME [None]
